FAERS Safety Report 7243559-1 (Version None)
Quarter: 2011Q1

REPORT INFORMATION
  Report Type: 
  Country: None (occurrence: None)
  Receive Date: 20110125
  Receipt Date: 20110112
  Transmission Date: 20110831
  Serious: Yes (Hospitalization, Other)
  Sender: FDA-Public Use
  Company Number: PHHY2011DE03624

PATIENT

DRUGS (1)
  1. EXTAVIA [Suspect]
     Indication: MULTIPLE SCLEROSIS
     Dosage: 250 UG, QOD
     Route: 058
     Dates: start: 20090320

REACTIONS (4)
  - GAIT DISTURBANCE [None]
  - MULTIPLE SCLEROSIS [None]
  - MUSCLE SPASTICITY [None]
  - FALL [None]
